FAERS Safety Report 24693552 (Version 2)
Quarter: 2024Q4

REPORT INFORMATION
  Report Type: Spontaneous
  Country: CZ (occurrence: CZ)
  Receive Date: 20241204
  Receipt Date: 20241211
  Transmission Date: 20250115
  Serious: Yes (Other)
  Sender: ABBVIE
  Company Number: CZ-MYLANLABS-2023M1059009

PATIENT
  Age: 24 Year
  Sex: Male

DRUGS (7)
  1. CARIPRAZINE [Suspect]
     Active Substance: CARIPRAZINE
     Indication: Psychotic disorder
     Route: 048
  2. CARIPRAZINE [Suspect]
     Active Substance: CARIPRAZINE
     Indication: Psychotic disorder
     Dosage: QD (TITRATION LASTED 5 MONTHS)
     Route: 048
  3. OLANZAPINE [Suspect]
     Active Substance: OLANZAPINE
     Indication: Psychotic disorder
     Route: 065
  4. OLANZAPINE [Suspect]
     Active Substance: OLANZAPINE
     Indication: Psychotic disorder
     Route: 048
  5. OLANZAPINE [Suspect]
     Active Substance: OLANZAPINE
     Indication: Psychotic disorder
     Route: 048
  6. OLANZAPINE [Suspect]
     Active Substance: OLANZAPINE
     Indication: Psychotic disorder
     Dosage: QD,(GRADUALLY REDUCED BY 5 MG)
  7. RISPERIDONE [Suspect]
     Active Substance: RISPERIDONE
     Indication: Psychotic disorder
     Route: 065

REACTIONS (8)
  - Hypoxia [Recovered/Resolved]
  - Disturbance in attention [Recovered/Resolved]
  - Weight increased [Recovered/Resolved]
  - Affect lability [Recovered/Resolved]
  - Flat affect [Recovered/Resolved]
  - Blunted affect [Recovered/Resolved]
  - Abulia [Recovered/Resolved]
  - Sedation [Recovered/Resolved]
